FAERS Safety Report 13731588 (Version 1)
Quarter: 2017Q3

REPORT INFORMATION
  Report Type: Spontaneous
  Country: PT (occurrence: PT)
  Receive Date: 20170707
  Receipt Date: 20170707
  Transmission Date: 20171127
  Serious: Yes (Other)
  Sender: FDA-Public Use
  Company Number: PT-FRESENIUS KABI-FK201705791

PATIENT
  Age: 80 Year
  Sex: Female

DRUGS (1)
  1. LETROZOLE (MANUFACTURER UNKNOWN) [Suspect]
     Active Substance: LETROZOLE
     Indication: INTRADUCTAL PROLIFERATIVE BREAST LESION
     Route: 042

REACTIONS (1)
  - Cutaneous lupus erythematosus [Recovering/Resolving]
